FAERS Safety Report 17217817 (Version 3)
Quarter: 2020Q2

REPORT INFORMATION
  Report Type: Spontaneous
  Country: US (occurrence: US)
  Receive Date: 20191231
  Receipt Date: 20200504
  Transmission Date: 20200713
  Serious: Yes (Other)
  Sender: FDA-Public Use
  Company Number: US-GILEAD-2019-0444746

PATIENT
  Age: 60 Year
  Sex: Male

DRUGS (45)
  1. TRUVADA [Suspect]
     Active Substance: EMTRICITABINE\TENOFOVIR DISOPROXIL FUMARATE
     Indication: HIV INFECTION
     Dosage: 1 DOSAGE FORM, QD
     Route: 048
     Dates: start: 201306, end: 201711
  2. METOPROLOL SUCCINATE. [Concomitant]
     Active Substance: METOPROLOL SUCCINATE
  3. HYDROMORPHONE [Concomitant]
     Active Substance: HYDROMORPHONE
  4. IBUPROFEN. [Concomitant]
     Active Substance: IBUPROFEN
  5. VASCEPA [Concomitant]
     Active Substance: ICOSAPENT ETHYL
  6. PREDNISONE. [Concomitant]
     Active Substance: PREDNISONE
  7. FARXIGA [Concomitant]
     Active Substance: DAPAGLIFLOZIN PROPANEDIOL
  8. CEFDINIR. [Concomitant]
     Active Substance: CEFDINIR
  9. SYMBICORT [Concomitant]
     Active Substance: BUDESONIDE\FORMOTEROL FUMARATE DIHYDRATE
  10. PERMETHRIN. [Concomitant]
     Active Substance: PERMETHRIN
  11. IRBESARTAN. [Concomitant]
     Active Substance: IRBESARTAN
  12. ZOLPIDEM [Concomitant]
     Active Substance: ZOLPIDEM TARTRATE
  13. VALACYCLOVIR [Concomitant]
     Active Substance: VALACYCLOVIR HYDROCHLORIDE
  14. HYDROCODONE BITARTRATE AND ACETAMINOPHEN [Concomitant]
     Active Substance: ACETAMINOPHEN\HYDROCODONE BITARTRATE
  15. FORTESTA [Concomitant]
     Active Substance: TESTOSTERONE
  16. NASONEX [Concomitant]
     Active Substance: MOMETASONE FUROATE
  17. BUPROPION HYDROCHLORIDE XL [Concomitant]
     Active Substance: BUPROPION HYDROCHLORIDE
  18. LYRICA [Concomitant]
     Active Substance: PREGABALIN
  19. ERYTHROMYCIN. [Concomitant]
     Active Substance: ERYTHROMYCIN
  20. FLUZONE [INFLUENZA VACCINE] [Concomitant]
  21. ABILIFY [Concomitant]
     Active Substance: ARIPIPRAZOLE
  22. VENTOLIN [Concomitant]
     Active Substance: ALBUTEROL SULFATE
  23. AZITHROMYCIN ANHYDROUS. [Concomitant]
     Active Substance: AZITHROMYCIN ANHYDROUS
  24. METFORMIN [Concomitant]
     Active Substance: METFORMIN HYDROCHLORIDE
  25. METHYLPREDNISOLONE. [Concomitant]
     Active Substance: METHYLPREDNISOLONE
  26. TRIAMCINOLONE [Concomitant]
     Active Substance: TRIAMCINOLONE
  27. DALIRESP [Concomitant]
     Active Substance: ROFLUMILAST
  28. BACLOFEN. [Concomitant]
     Active Substance: BACLOFEN
  29. FLUOXETINE [Concomitant]
     Active Substance: FLUOXETINE HYDROCHLORIDE
  30. ATORVASTATIN [Concomitant]
     Active Substance: ATORVASTATIN
  31. LIDOCAINE. [Concomitant]
     Active Substance: LIDOCAINE
  32. ONDANSETRON [Concomitant]
     Active Substance: ONDANSETRON
  33. CARISOPRODOL. [Concomitant]
     Active Substance: CARISOPRODOL
  34. HYDROCHLOROTHIAZIDE. [Concomitant]
     Active Substance: HYDROCHLOROTHIAZIDE
  35. KLOR-CON [Concomitant]
     Active Substance: POTASSIUM CHLORIDE
  36. GABAPENTIN. [Concomitant]
     Active Substance: GABAPENTIN
  37. LEVITRA [Concomitant]
     Active Substance: VARDENAFIL HYDROCHLORIDE
  38. ASPIRIN 81 [Concomitant]
     Active Substance: ASPIRIN
  39. MONTELUKAST [Concomitant]
     Active Substance: MONTELUKAST SODIUM
  40. ULORIC [Concomitant]
     Active Substance: FEBUXOSTAT
  41. DIAZEPAM. [Concomitant]
     Active Substance: DIAZEPAM
  42. LEVOFLOXACIN. [Concomitant]
     Active Substance: LEVOFLOXACIN
  43. SPIRIVA [Concomitant]
     Active Substance: TIOTROPIUM BROMIDE MONOHYDRATE
  44. XIGDUO XR [Concomitant]
     Active Substance: DAPAGLIFLOZIN PROPANEDIOL\METFORMIN HYDROCHLORIDE
  45. CRESTOR [Concomitant]
     Active Substance: ROSUVASTATIN CALCIUM

REACTIONS (11)
  - Chronic kidney disease [Unknown]
  - Anhedonia [Unknown]
  - Anxiety [Unknown]
  - Pain [Unknown]
  - Multiple fractures [Unknown]
  - Bone density decreased [Unknown]
  - Economic problem [Unknown]
  - Emotional distress [Unknown]
  - Renal impairment [Unknown]
  - Nephropathy [Recovered/Resolved]
  - Hip arthroplasty [Not Recovered/Not Resolved]

NARRATIVE: CASE EVENT DATE: 201506
